FAERS Safety Report 9677441 (Version 1)
Quarter: 2013Q4

REPORT INFORMATION
  Report Type: Spontaneous
  Country: US (occurrence: US)
  Receive Date: 20131108
  Receipt Date: 20131108
  Transmission Date: 20140711
  Serious: No
  Sender: FDA-Public Use
  Company Number: US-ENDO PHARMACEUTICALS INC.-GLIM20120002

PATIENT
  Age: 69 Year
  Sex: Male
  Weight: 118.04 kg

DRUGS (7)
  1. GLIMEPIRIDE TABLETS 4MG [Suspect]
     Indication: DIABETES MELLITUS
     Route: 048
     Dates: start: 201110
  2. GLIMEPIRIDE TABLETS 4MG [Suspect]
     Route: 048
     Dates: start: 201202
  3. METFORMIN [Concomitant]
     Indication: DIABETES MELLITUS
     Route: 065
  4. METFORMIN [Concomitant]
     Route: 065
  5. LISINOPRIL/HCTZ [Concomitant]
     Indication: FLUID RETENTION
     Route: 065
  6. SIMVASTATIN [Concomitant]
     Indication: BLOOD CHOLESTEROL INCREASED
     Route: 048
  7. ATENOLOL [Concomitant]
     Indication: PRODUCT USED FOR UNKNOWN INDICATION
     Route: 048

REACTIONS (2)
  - Blood glucose increased [Not Recovered/Not Resolved]
  - Weight decreased [Not Recovered/Not Resolved]
